FAERS Safety Report 14103430 (Version 6)
Quarter: 2018Q1

REPORT INFORMATION
  Report Type: Spontaneous
  Country: HR (occurrence: HR)
  Receive Date: 20171018
  Receipt Date: 20180302
  Transmission Date: 20180508
  Serious: Yes (Other)
  Sender: FDA-Public Use
  Company Number: HR-JNJFOC-20171014087

PATIENT
  Age: 4 Decade
  Sex: Male

DRUGS (9)
  1. CIPRINOL [Concomitant]
     Active Substance: CIPROFLOXACIN
     Indication: TOXOPLASMOSIS
     Route: 065
  2. CLAVULANIC ACID [Concomitant]
     Active Substance: CLAVULANIC ACID
     Route: 065
  3. SIMPONI [Suspect]
     Active Substance: GOLIMUMAB
     Indication: ANKYLOSING SPONDYLITIS
     Route: 058
     Dates: start: 20140711, end: 20161201
  4. AMOXICILLIN. [Concomitant]
     Active Substance: AMOXICILLIN
     Route: 065
  5. INFLECTRA [Suspect]
     Active Substance: INFLIXIMAB-DYYB
     Indication: PRODUCT USED FOR UNKNOWN INDICATION
     Route: 042
     Dates: start: 20160404
  6. CIPRINOL [Concomitant]
     Active Substance: CIPROFLOXACIN
     Indication: SARCOIDOSIS
     Route: 065
  7. CIPRINOL [Concomitant]
     Active Substance: CIPROFLOXACIN
     Indication: TUBERCULOSIS
     Route: 065
  8. INFLECTRA [Suspect]
     Active Substance: INFLIXIMAB-DYYB
     Indication: PRODUCT USED FOR UNKNOWN INDICATION
     Route: 042
     Dates: start: 20160418
  9. INFLECTRA [Suspect]
     Active Substance: INFLIXIMAB-DYYB
     Indication: PRODUCT USED FOR UNKNOWN INDICATION
     Route: 042
     Dates: start: 20160602

REACTIONS (5)
  - Disseminated tuberculosis [Unknown]
  - Crohn^s disease [Unknown]
  - Intestinal stenosis [Unknown]
  - Drug ineffective [Unknown]
  - Joint swelling [Unknown]

NARRATIVE: CASE EVENT DATE: 2016
